FAERS Safety Report 9657921 (Version 1)
Quarter: 2013Q4

REPORT INFORMATION
  Report Type: Report from Study
  Country: US (occurrence: US)
  Receive Date: 20131030
  Receipt Date: 20131030
  Transmission Date: 20140711
  Serious: Yes (Other)
  Sender: FDA-Public Use
  Company Number: US-ROCHE-1294965

PATIENT
  Age: 11 Year
  Sex: Male
  Weight: 27.47 kg

DRUGS (2)
  1. NUTROPIN [Suspect]
     Indication: GROWTH RETARDATION
     Route: 058
     Dates: start: 201008
  2. BENADRYL (UNITED STATES) [Concomitant]
     Indication: HYPERSENSITIVITY
     Route: 048

REACTIONS (6)
  - Blood urea increased [Unknown]
  - Blood creatinine increased [Unknown]
  - Mean cell haemoglobin decreased [Unknown]
  - Glycosylated haemoglobin increased [Unknown]
  - Dry skin [Unknown]
  - Eosinophil count increased [Unknown]
